FAERS Safety Report 23399296 (Version 1)
Quarter: 2024Q1

REPORT INFORMATION
  Report Type: Spontaneous
  Country: AU (occurrence: AU)
  Receive Date: 20240113
  Receipt Date: 20240113
  Transmission Date: 20240410
  Serious: Yes (Hospitalization, Other)
  Sender: FDA-Public Use
  Company Number: AU-AMGEN-AUSSP2024007072

PATIENT
  Age: 35 Year
  Sex: Female

DRUGS (6)
  1. ADALIMUMAB [Suspect]
     Active Substance: ADALIMUMAB\ISOPROPYL ALCOHOL
     Indication: Hidradenitis
     Dosage: UNK
     Route: 058
  2. INFLIXIMAB [Concomitant]
     Active Substance: INFLIXIMAB
  3. COSENTYX [Concomitant]
     Active Substance: SECUKINUMAB
  4. PREDNISONE [Concomitant]
     Active Substance: PREDNISONE
  5. AZATHIOPRINE [Concomitant]
     Active Substance: AZATHIOPRINE
  6. XELJANZ [Concomitant]
     Active Substance: TOFACITINIB CITRATE
     Dosage: 5 MILLIGRAM, QWK

REACTIONS (7)
  - Hidradenitis [Not Recovered/Not Resolved]
  - Clostridium difficile colitis [Unknown]
  - Vulval disorder [Unknown]
  - Impaired quality of life [Unknown]
  - Impaired work ability [Unknown]
  - Loss of personal independence in daily activities [Unknown]
  - Drug ineffective [Unknown]

NARRATIVE: CASE EVENT DATE: 20220101
